FAERS Safety Report 5781942-1 (Version None)
Quarter: 2008Q2

REPORT INFORMATION
  Report Type: 
  Country: None (occurrence: None)
  Receive Date: 20080623
  Receipt Date: 20080612
  Transmission Date: 20081010
  Serious: Yes (Hospitalization)
  Sender: FDA-Public Use
  Company Number: B0525613A

PATIENT
  Age: 6 Year
  Sex: Female

DRUGS (1)
  1. AMOXICILLIN TRIHYDRATE [Suspect]
     Indication: PRODUCTIVE COUGH
     Dosage: 50MGK THREE TIMES PER DAY
     Route: 048
     Dates: start: 20061122, end: 20061122

REACTIONS (3)
  - DYSPNOEA [None]
  - RALES [None]
  - RASH [None]
